FAERS Safety Report 7579956-4 (Version None)
Quarter: 2011Q2

REPORT INFORMATION
  Report Type: 
  Country: None (occurrence: None)
  Receive Date: 20110629
  Receipt Date: 20110615
  Transmission Date: 20111010
  Serious: Yes (Other)
  Sender: FDA-Public Use
  Company Number: CA-JNJFOC-20100704477

PATIENT
  Sex: Female
  Weight: 54 kg

DRUGS (1)
  1. REMICADE [Suspect]
     Indication: CROHN'S DISEASE
     Dosage: 100 MG/KG.    30
     Route: 042
     Dates: start: 20080318

REACTIONS (1)
  - CYST REMOVAL [None]
